FAERS Safety Report 5010484-6 (Version None)
Quarter: 2006Q2

REPORT INFORMATION
  Report Type: 
  Country: None (occurrence: None)
  Receive Date: 20060525
  Receipt Date: 20050504
  Transmission Date: 20061013
  Serious: No
  Sender: FDA-Public Use
  Company Number: US-GLAXOSMITHKLINE-A0557277A

PATIENT
  Age: 71 Year
  Sex: Female

DRUGS (2)
  1. BACTROBAN [Suspect]
     Indication: PROPHYLAXIS
     Dosage: 1APP TWICE PER DAY
     Route: 045
     Dates: start: 20040429
  2. ATENOLOL [Concomitant]

REACTIONS (2)
  - NAUSEA [None]
  - STOMACH DISCOMFORT [None]
